FAERS Safety Report 7741384-6 (Version None)
Quarter: 2011Q3

REPORT INFORMATION
  Report Type: 
  Country: None (occurrence: None)
  Receive Date: 20110909
  Receipt Date: 20110903
  Transmission Date: 20111222
  Serious: Yes (Death, Hospitalization, Other)
  Sender: FDA-Public Use
  Company Number: PHHY2010BR82680

PATIENT
  Sex: Male

DRUGS (1)
  1. EXFORGE [Suspect]
     Dosage: 160 MG OF OF VALS AND 05 MG OF AMLO
     Route: 048

REACTIONS (4)
  - MULTI-ORGAN FAILURE [None]
  - METASTASIS [None]
  - TESTIS CANCER [None]
  - METASTASES TO LUNG [None]
